FAERS Safety Report 24327343 (Version 1)
Quarter: 2024Q3

REPORT INFORMATION
  Report Type: Spontaneous
  Country: FR (occurrence: None)
  Receive Date: 20240917
  Receipt Date: 20240917
  Transmission Date: 20241017
  Serious: Yes (Other)
  Sender: ASTRAZENECA
  Company Number: 2024A208636

PATIENT
  Age: 61 Year
  Sex: Male

DRUGS (1)
  1. SAPHNELO [Suspect]
     Active Substance: ANIFROLUMAB-FNIA
     Indication: Systemic lupus erythematosus
     Dosage: 1MG/ML EVERY FOUR WEEKS
     Dates: start: 202407

REACTIONS (2)
  - Bone fistula [Unknown]
  - Osteitis [Unknown]

NARRATIVE: CASE EVENT DATE: 20240910
